FAERS Safety Report 8479213-8 (Version None)
Quarter: 2012Q2

REPORT INFORMATION
  Report Type: 
  Country: None (occurrence: None)
  Receive Date: 20120629
  Receipt Date: 20120619
  Transmission Date: 20120825
  Serious: Yes (Hospitalization)
  Sender: FDA-Public Use
  Company Number: FR-CUBIST-2012S1000547

PATIENT
  Age: 76 Year
  Sex: Female

DRUGS (10)
  1. CUBICIN [Suspect]
     Indication: OSTEOMYELITIS
     Route: 042
     Dates: start: 20120502, end: 20120516
  2. VANCOMYCIN [Suspect]
     Indication: OSTEOMYELITIS
     Route: 042
     Dates: start: 20120427, end: 20120502
  3. GENTAMICIN [Concomitant]
     Indication: PRODUCT USED FOR UNKNOWN INDICATION
  4. FUROSEMIDE [Suspect]
     Indication: PRODUCT USED FOR UNKNOWN INDICATION
     Route: 042
     Dates: start: 20120427, end: 20120501
  5. ORBENIN CAP [Concomitant]
     Indication: PRODUCT USED FOR UNKNOWN INDICATION
  6. ESIDRIX [Suspect]
     Indication: PRODUCT USED FOR UNKNOWN INDICATION
     Route: 048
     Dates: start: 20120418, end: 20120504
  7. RIFADIN [Suspect]
     Indication: OSTEOMYELITIS
     Route: 048
     Dates: start: 20120502, end: 20120516
  8. IPERTEN [Concomitant]
     Indication: PRODUCT USED FOR UNKNOWN INDICATION
  9. HYZAAR [Concomitant]
     Indication: PRODUCT USED FOR UNKNOWN INDICATION
  10. KARDEGIC [Concomitant]
     Indication: PRODUCT USED FOR UNKNOWN INDICATION

REACTIONS (6)
  - SEPSIS [None]
  - PLEURAL DISORDER [None]
  - HYPOKALAEMIA [None]
  - INFECTION [None]
  - BLOOD CREATINE INCREASED [None]
  - ANAEMIA [None]
